FAERS Safety Report 24224651 (Version 1)
Quarter: 2024Q3

REPORT INFORMATION
  Report Type: Report from Study
  Country: US (occurrence: None)
  Receive Date: 20240819
  Receipt Date: 20240819
  Transmission Date: 20241017
  Serious: Yes (Hospitalization, Congenital Anomaly)
  Sender: ASTRAZENECA
  Company Number: 2022A356842

PATIENT
  Sex: Male

DRUGS (1)
  1. CALQUENCE [Suspect]
     Active Substance: ACALABRUTINIB
     Route: 048

REACTIONS (3)
  - Cough [Unknown]
  - Pyrexia [Recovered/Resolved]
  - Tremor [Unknown]
